FAERS Safety Report 6657904-9 (Version None)
Quarter: 2010Q1

REPORT INFORMATION
  Report Type: 
  Country: None (occurrence: None)
  Receive Date: 20100330
  Receipt Date: 20100318
  Transmission Date: 20100710
  Serious: Yes (Hospitalization)
  Sender: FDA-Public Use
  Company Number: JP-ROCHE-692929

PATIENT
  Sex: Female

DRUGS (25)
  1. TOCILIZUMAB [Suspect]
     Indication: RHEUMATOID ARTHRITIS
     Dosage: FORM: INJECTION.
     Route: 041
     Dates: start: 20090407, end: 20090407
  2. TOCILIZUMAB [Suspect]
     Route: 041
     Dates: start: 20090428, end: 20090428
  3. TOCILIZUMAB [Suspect]
     Route: 041
     Dates: start: 20090529, end: 20090529
  4. TOCILIZUMAB [Suspect]
     Route: 041
     Dates: start: 20090626, end: 20090626
  5. TOCILIZUMAB [Suspect]
     Route: 041
     Dates: start: 20090724, end: 20090724
  6. TOCILIZUMAB [Suspect]
     Route: 041
     Dates: start: 20090821, end: 20090821
  7. TOCILIZUMAB [Suspect]
     Route: 041
     Dates: start: 20090918
  8. WARFARIN POTASSIUM [Suspect]
     Indication: PROPHYLAXIS
     Route: 048
  9. BREDININ [Concomitant]
     Route: 048
  10. RIMATIL [Concomitant]
     Route: 048
  11. RHEUMATREX [Concomitant]
     Route: 048
  12. RHEUMATREX [Concomitant]
     Route: 048
     Dates: start: 20090725
  13. SODIUM AUROTHIOMALATE [Concomitant]
     Dosage: DRUG NAME: SHIOSOL, FORM:INJECTION.
     Route: 030
  14. ISCOTIN [Concomitant]
     Dosage: FORM: PERORAL AGENT.
     Route: 048
     Dates: start: 20090318
  15. PREDNISOLONE [Concomitant]
     Route: 048
     Dates: end: 20090724
  16. PREDNISOLONE [Concomitant]
     Route: 048
     Dates: start: 20090725, end: 20090821
  17. PREDNISOLONE [Concomitant]
     Route: 048
     Dates: start: 20090822
  18. DEXAMETHASONE SODIUM PHOSPHATE [Concomitant]
     Dosage: FORM: INJECTION, DRUG: ORGADRONE
     Route: 014
  19. LOXONIN [Concomitant]
     Dosage: FORM: PERORAL AGENT.
     Route: 048
  20. INFREE [Concomitant]
     Route: 048
  21. METHYCOBAL [Concomitant]
     Dosage: FORM: PERORAL AGENT.
     Route: 048
  22. SELBEX [Concomitant]
     Route: 048
  23. FERROMIA [Concomitant]
     Dosage: FORM: PERORAL AGENT.
     Route: 048
  24. FOLIC ACID [Concomitant]
     Route: 048
  25. CANDESARTAN CILEXETIL [Concomitant]
     Route: 048

REACTIONS (3)
  - CARDIAC FAILURE CONGESTIVE [None]
  - HAEMORRHAGE SUBCUTANEOUS [None]
  - WHITE BLOOD CELL COUNT DECREASED [None]
